FAERS Safety Report 22927213 (Version 3)
Quarter: 2023Q4

REPORT INFORMATION
  Report Type: Report from Study
  Country: FR (occurrence: FR)
  Receive Date: 20230911
  Receipt Date: 20231006
  Transmission Date: 20240109
  Serious: Yes (Hospitalization, Other)
  Sender: FDA-Public Use
  Company Number: FR-IPSEN Group, Research and Development-2023-21059

PATIENT

DRUGS (3)
  1. CABOZANTINIB [Suspect]
     Active Substance: CABOZANTINIB
     Indication: Osteosarcoma
     Dosage: 40 MG
     Route: 048
     Dates: start: 20230825
  2. CABOZANTINIB [Suspect]
     Active Substance: CABOZANTINIB
     Indication: Off label use
  3. PEMBROLIZUMAB [Suspect]
     Active Substance: PEMBROLIZUMAB
     Indication: Product used for unknown indication
     Dosage: 200 MG
     Route: 042
     Dates: start: 20230825

REACTIONS (3)
  - Pneumothorax [Recovered/Resolved]
  - Metastasis [Unknown]
  - Off label use [Unknown]

NARRATIVE: CASE EVENT DATE: 20230901
